FAERS Safety Report 19472833 (Version 1)
Quarter: 2021Q2

REPORT INFORMATION
  Report Type: Spontaneous
  Country: US (occurrence: US)
  Receive Date: 20210629
  Receipt Date: 20210629
  Transmission Date: 20210717
  Serious: Yes (Other)
  Sender: FDA-Public Use
  Company Number: US-MYLANLABS-2021M1038503

PATIENT
  Age: 23 Month
  Sex: Female

DRUGS (7)
  1. VINCRISTINE [Suspect]
     Active Substance: VINCRISTINE
     Dosage: 1.5 MILLIGRAM/SQ. METER WEEK 3 AND WEEK 5, DAY 1
     Route: 042
  2. CARBOPLATIN. [Suspect]
     Active Substance: CARBOPLATIN
     Indication: MEDULLOBLASTOMA
     Dosage: 200 MILLIGRAM/SQ. METER, QD WEEK 1 AND WEEK 7, DAY 1?3
     Route: 042
  3. METHOTREXATE. [Suspect]
     Active Substance: METHOTREXATE
     Dosage: 5 G/M2; WEEK 3 AND WEEK 5, 24H INFUSION
     Route: 042
  4. METHOTREXATE. [Suspect]
     Active Substance: METHOTREXATE
     Indication: MEDULLOBLASTOMA
     Dosage: WEEK 1 AND WEEK 7, DAY 1?4
     Route: 037
  5. CYCLOPHOSPHAMIDE. [Suspect]
     Active Substance: CYCLOPHOSPHAMIDE
     Indication: MEDULLOBLASTOMA
     Dosage: 800 MILLIGRAM/SQ. METER, QD WEEK 1 AND WEEK 7, DAY 1?3
     Route: 042
  6. VINCRISTINE [Suspect]
     Active Substance: VINCRISTINE
     Indication: MEDULLOBLASTOMA
     Dosage: 1.5 MILLIGRAM/SQ. METER WEEK 1 AND WEEK 7, DAY 1
     Route: 042
  7. ETOPOSIDE. [Suspect]
     Active Substance: ETOPOSIDE
     Indication: MEDULLOBLASTOMA
     Dosage: 150 MILLIGRAM/SQ. METER, QD WEEK 1 AND WEEK 7, DAY 1?3
     Route: 042

REACTIONS (3)
  - Pancytopenia [Unknown]
  - Deafness [Not Recovered/Not Resolved]
  - Pyrexia [Recovered/Resolved]
